FAERS Safety Report 7279965-9 (Version None)
Quarter: 2011Q1

REPORT INFORMATION
  Report Type: 
  Country: None (occurrence: None)
  Receive Date: 20110208
  Receipt Date: 20110201
  Transmission Date: 20110831
  Serious: Yes (Other)
  Sender: FDA-Public Use
  Company Number: US-PFIZER INC-2011023212

PATIENT
  Sex: Male

DRUGS (1)
  1. VORICONAZOLE [Suspect]
     Indication: ASPERGILLOSIS
     Dosage: 200 MG, 2X/DAY
     Route: 048
     Dates: start: 20110103

REACTIONS (8)
  - HALLUCINATION [None]
  - AGITATION [None]
  - TENSION [None]
  - DEPRESSION [None]
  - ANXIETY [None]
  - FORMICATION [None]
  - SKIN DISORDER [None]
  - THINKING ABNORMAL [None]
